FAERS Safety Report 8473433-4 (Version None)
Quarter: 2012Q2

REPORT INFORMATION
  Report Type: 
  Country: None (occurrence: None)
  Receive Date: 20120628
  Receipt Date: 20120622
  Transmission Date: 20120825
  Serious: Yes (Hospitalization, Other)
  Sender: FDA-Public Use
  Company Number: FR-ELI_LILLY_AND_COMPANY-FR201203004733

PATIENT
  Sex: Male
  Weight: 50 kg

DRUGS (3)
  1. UMATROPE [Suspect]
     Dosage: UNK UNK, UNKNOWN
     Route: 058
     Dates: start: 20110901, end: 20120216
  2. HYDROCORT [Concomitant]
     Indication: ADRENAL DISORDER
     Dosage: UNK UNK, QD
     Route: 048
     Dates: start: 20100301
  3. LEVOTHYROXINE SODIUM [Concomitant]
     Indication: HYPOTHYROIDISM
     Dosage: 100 UG, UNKNOWN
     Route: 048
     Dates: start: 20100301

REACTIONS (1)
  - PITUITARY TUMOUR RECURRENT [None]
